FAERS Safety Report 5175722-8 (Version None)
Quarter: 2006Q4

REPORT INFORMATION
  Report Type: 
  Country: None (occurrence: None)
  Receive Date: 20061215
  Receipt Date: 20061127
  Transmission Date: 20070319
  Serious: Yes (Other)
  Sender: FDA-Public Use
  Company Number: US-BAYER-200614772BCC

PATIENT
  Age: 56 Year
  Sex: Female
  Weight: 125 kg

DRUGS (9)
  1. LOW DOSE BAYER ENTERIC [Suspect]
     Indication: CARDIOVASCULAR EVENT PROPHYLAXIS
     Dosage: TOTAL DAILY DOSE: 81 MG  UNIT DOSE: 81 MG
     Route: 048
     Dates: end: 20061101
  2. ASPIRIN [Suspect]
     Indication: PHLEBITIS
     Dosage: TOTAL DAILY DOSE: 325 MG  UNIT DOSE: 325 MG
     Route: 048
     Dates: start: 20061117, end: 20061121
  3. ASPIRIN [Suspect]
     Route: 048
     Dates: start: 20061101, end: 20061103
  4. ASPIRIN [Suspect]
     Route: 048
     Dates: start: 20061113, end: 20061116
  5. ANTIHYPERTENSIVE MEDICATION [Concomitant]
  6. MEDICATION FOR DIABETES [Concomitant]
  7. MEDICATION FOR HIGH CHOLESTEROL [Concomitant]
  8. DIURETIC [Concomitant]
  9. ANTIBIOTIC [Concomitant]

REACTIONS (4)
  - BLOOD URINE PRESENT [None]
  - PAIN IN EXTREMITY [None]
  - PHLEBITIS [None]
  - SKIN DISCOLOURATION [None]
